FAERS Safety Report 14527534 (Version 1)
Quarter: 2018Q1

REPORT INFORMATION
  Report Type: Spontaneous
  Country: FR (occurrence: FR)
  Receive Date: 20180213
  Receipt Date: 20180213
  Transmission Date: 20180509
  Serious: Yes (Death, Hospitalization)
  Sender: FDA-Public Use
  Company Number: FR-BAUSCH-BL-2018-003759

PATIENT
  Age: 85 Year
  Sex: Female
  Weight: 91 kg

DRUGS (3)
  1. GENTAMICINE [Suspect]
     Active Substance: GENTAMICIN
     Indication: POST PROCEDURAL INFECTION
     Route: 041
  2. VANCOMYCINE [Suspect]
     Active Substance: VANCOMYCIN
     Indication: POST PROCEDURAL INFECTION
     Route: 041
  3. TAZOCILLINE [Suspect]
     Active Substance: PIPERACILLIN SODIUM\TAZOBACTAM SODIUM
     Indication: POST PROCEDURAL INFECTION
     Route: 041

REACTIONS (1)
  - Acute kidney injury [Recovering/Resolving]

NARRATIVE: CASE EVENT DATE: 20160306
